FAERS Safety Report 15036131 (Version 1)
Quarter: 2018Q2

REPORT INFORMATION
  Report Type: Other
  Country: NL (occurrence: NL)
  Receive Date: 20180620
  Receipt Date: 20180620
  Transmission Date: 20180711
  Serious: Yes (Other)
  Sender: FDA-Public Use
  Company Number: NL-CELLTRION INC.-2018NL020643

PATIENT

DRUGS (9)
  1. REMSIMA [Suspect]
     Active Substance: INFLIXIMAB
     Indication: PSORIATIC ARTHROPATHY
     Dosage: 1 DF,1 X PER DAY 300-MILLIGRAM INFUSION OVER 2 HOURS IF WELL TOLERATED AFTER 3RD TIME OVER 1 HOUR. 1
     Route: 065
     Dates: start: 20170612, end: 20170612
  2. FAMOTIDINE. [Concomitant]
     Active Substance: FAMOTIDINE
     Dosage: 20 MG,12 HOUR
  3. DIVISUN [Concomitant]
  4. METHOTREXATE. [Concomitant]
     Active Substance: METHOTREXATE
     Dosage: 12.5 MG, 1/WEEK
  5. PREDNISON [Concomitant]
     Active Substance: PREDNISONE
     Dosage: 5 MG, DAILY
  6. FOLIUMZUUR [Concomitant]
     Active Substance: FOLIC ACID
     Dosage: 1 DF,3.5 DAY  (2X PER WEEK )
  7. REMSIMA [Suspect]
     Active Substance: INFLIXIMAB
     Dosage: 1 DF, 1 X PER DAY 300-MILLIGRAM INFUSION OVER 2 HOURS IF WELL TOLERATED AFTER 3RD TIME OVER 1 HOUR.
     Route: 065
     Dates: start: 20170822, end: 20170822
  8. AMLODIPINE [Concomitant]
     Active Substance: AMLODIPINE BESYLATE
     Dosage: 10 MG, DAILY
  9. ACENOCOUMAROL [Concomitant]
     Active Substance: ACENOCOUMAROL
     Dosage: 1 MG

REACTIONS (4)
  - Therapeutic response unexpected [Recovered/Resolved]
  - Scleritis [Recovered/Resolved]
  - Inappropriate schedule of drug administration [Unknown]
  - Condition aggravated [Recovered/Resolved]
